FAERS Safety Report 9764592 (Version 3)
Quarter: 2014Q2

REPORT INFORMATION
  Report Type: Report from Study
  Country: CA (occurrence: CA)
  Receive Date: 20131217
  Receipt Date: 20140416
  Transmission Date: 20141212
  Serious: Yes (Hospitalization)
  Sender: FDA-Public Use
  Company Number: CA-ROCHE-1319320

PATIENT
  Sex: Female

DRUGS (8)
  1. RITUXAN [Suspect]
     Indication: CRYOGLOBULINAEMIA
     Dosage: LAST DOSE OF RITUXIMAB RECEIVED 11/FEB/2013
     Route: 042
     Dates: start: 20120202
  2. ELTROXIN [Concomitant]
  3. FOLIC ACID [Concomitant]
  4. HYDROXYCHLOROQUINE [Concomitant]
  5. PREDNISONE [Concomitant]
  6. DERMOVATE [Concomitant]
  7. ONDANSETRON [Concomitant]
  8. LYRICA [Concomitant]
     Indication: HERPES ZOSTER

REACTIONS (4)
  - Uterine enlargement [Unknown]
  - Off label use [Unknown]
  - Rheumatoid arthritis [Not Recovered/Not Resolved]
  - Malaise [Unknown]
